FAERS Safety Report 5752435-2 (Version None)
Quarter: 2008Q2

REPORT INFORMATION
  Report Type: 
  Country: None (occurrence: None)
  Receive Date: 20080529
  Receipt Date: 20080519
  Transmission Date: 20081010
  Serious: Yes (Hospitalization)
  Sender: FDA-Public Use
  Company Number: B0521315A

PATIENT
  Sex: Female

DRUGS (2)
  1. LAPATINIB [Suspect]
  2. XELODA [Suspect]

REACTIONS (2)
  - ANOREXIA [None]
  - DEHYDRATION [None]
